FAERS Safety Report 22049474 (Version 1)
Quarter: 2023Q1

REPORT INFORMATION
  Report Type: Spontaneous
  Country: US (occurrence: None)
  Receive Date: 20230228
  Receipt Date: 20230228
  Transmission Date: 20230418
  Serious: Yes (Hospitalization)
  Sender: FDA-Public Use
  Company Number: None

PATIENT
  Age: 68 Year
  Sex: Female
  Weight: 42.3 kg

DRUGS (1)
  1. NUEDEXTA [Suspect]
     Active Substance: DEXTROMETHORPHAN HYDROBROMIDE\QUINIDINE SULFATE
     Indication: Affect lability
     Dosage: OTHER QUANTITY : 1 CAPSULE(S);?FREQUENCY : TWICE A DAY;?
     Route: 048

REACTIONS (10)
  - Headache [None]
  - Neurological symptom [None]
  - Affect lability [None]
  - Dyspnoea [None]
  - Agitation [None]
  - Palpitations [None]
  - Mental impairment [None]
  - Eye movement disorder [None]
  - Diplopia [None]
  - Vitreous floaters [None]

NARRATIVE: CASE EVENT DATE: 20230125
